FAERS Safety Report 19745087 (Version 1)
Quarter: 2021Q3

REPORT INFORMATION
  Report Type: Spontaneous
  Country: NL (occurrence: IE)
  Receive Date: 20210825
  Receipt Date: 20210825
  Transmission Date: 20211014
  Serious: Yes (Hospitalization, Other)
  Sender: FDA-Public Use
  Company Number: IE-FRESENIUS KABI-FK202108830

PATIENT
  Sex: Male
  Weight: 67.6 kg

DRUGS (2)
  1. PACLITAXEL. [Suspect]
     Active Substance: PACLITAXEL
     Indication: PENILE SQUAMOUS CELL CARCINOMA
     Dosage: UNK
     Route: 065
     Dates: start: 202001, end: 20200201
  2. CARBOPLATIN (MANUFACTURER UNKNOWN) [Suspect]
     Active Substance: CARBOPLATIN
     Indication: PENILE SQUAMOUS CELL CARCINOMA
     Dosage: UNK
     Route: 065
     Dates: start: 202001, end: 20200201

REACTIONS (3)
  - Wound dehiscence [Unknown]
  - Drug intolerance [Unknown]
  - Inguinal hernia strangulated [Unknown]

NARRATIVE: CASE EVENT DATE: 20200201
